FAERS Safety Report 22244036 (Version 1)
Quarter: 2023Q2

REPORT INFORMATION
  Report Type: Spontaneous
  Country: US (occurrence: US)
  Receive Date: 20230424
  Receipt Date: 20230424
  Transmission Date: 20230722
  Serious: No
  Sender: FDA-Public Use
  Company Number: US-SA-SAC20221122000249

PATIENT
  Age: 49 Year
  Sex: Female
  Weight: 92.07 kg

DRUGS (16)
  1. DUPIXENT [Suspect]
     Active Substance: DUPILUMAB
     Indication: Dermatitis allergic
     Dosage: 300MG, QOW
     Route: 058
     Dates: start: 20221101
  2. BIOTIN [Concomitant]
     Active Substance: BIOTIN
  3. BIOTIN [Concomitant]
     Active Substance: BIOTIN
  4. APPLE CIDER VINEGAR [MALUS SPP. VINEGAR EXTRACT] [Concomitant]
  5. FIBER LAX [Concomitant]
     Active Substance: CALCIUM POLYCARBOPHIL
  6. FIBER LAX [Concomitant]
     Active Substance: CALCIUM POLYCARBOPHIL
  7. VITAMIN D2 [Concomitant]
     Active Substance: ERGOCALCIFEROL
  8. VITAMIN D2 [Concomitant]
     Active Substance: ERGOCALCIFEROL
  9. IRON [Concomitant]
     Active Substance: IRON
  10. IRON [Concomitant]
     Active Substance: IRON
  11. HYDROCHLOROTHIAZIDE [Concomitant]
     Active Substance: HYDROCHLOROTHIAZIDE
  12. HYDROCHLOROTHIAZIDE [Concomitant]
     Active Substance: HYDROCHLOROTHIAZIDE
  13. FISH OIL [Concomitant]
     Active Substance: FISH OIL
  14. FISH OIL [Concomitant]
     Active Substance: FISH OIL
  15. PROBIOTICS NOS [Concomitant]
     Active Substance: PROBIOTICS NOS
  16. APPLE CIDER [Concomitant]

REACTIONS (1)
  - Pruritus [Unknown]
